FAERS Safety Report 22003002 (Version 2)
Quarter: 2023Q1

REPORT INFORMATION
  Report Type: Other
  Country: US (occurrence: None)
  Receive Date: 20230217
  Receipt Date: 20230220
  Transmission Date: 20230418
  Serious: No
  Sender: FDA-Public Use
  Company Number: US-ROCHE-3288445

PATIENT
  Age: 60 Year
  Sex: Female

DRUGS (1)
  1. OCREVUS [Suspect]
     Active Substance: OCRELIZUMAB
     Indication: Relapsing multiple sclerosis
     Dosage: DATE OF TREATMENT: 07/JUN/2021, 23/NOV/2021, 24/MAY/2022, 04/JAN/2023
     Route: 042
     Dates: start: 20210607

REACTIONS (1)
  - Influenza [Recovered/Resolved]
